FAERS Safety Report 17194789 (Version 1)
Quarter: 2020Q1

REPORT INFORMATION
  Report Type: Spontaneous
  Country: US (occurrence: US)
  Receive Date: 20191223
  Receipt Date: 20191223
  Transmission Date: 20200409
  Serious: Yes (Disabling)
  Sender: FDA-Public Use
  Company Number: None

PATIENT
  Age: 71 Year
  Sex: Male
  Weight: 83.25 kg

DRUGS (7)
  1. CELECOXIB. [Concomitant]
     Active Substance: CELECOXIB
  2. VITAMIN D [Concomitant]
     Active Substance: VITAMIN D NOS
  3. RAPAFLO [Concomitant]
     Active Substance: SILODOSIN
  4. HYDROCHLOROTHIAZIDE. [Concomitant]
     Active Substance: HYDROCHLOROTHIAZIDE
  5. NIACIN. [Concomitant]
     Active Substance: NIACIN
  6. PERCOCET [Concomitant]
     Active Substance: ACETAMINOPHEN\OXYCODONE HYDROCHLORIDE
  7. ROPIVACAINE INJECTION [Suspect]
     Active Substance: ROPIVACAINE
     Route: 030

REACTIONS (4)
  - Peroneal nerve palsy [None]
  - Nerve injury [None]
  - Pain [None]
  - Toxicity to various agents [None]

NARRATIVE: CASE EVENT DATE: 20190515
